FAERS Safety Report 10538533 (Version 2)
Quarter: 2014Q4

REPORT INFORMATION
  Report Type: Spontaneous
  Country: US (occurrence: US)
  Receive Date: 20141023
  Receipt Date: 20141023
  Transmission Date: 20150529
  Serious: Yes (Hospitalization, Other)
  Sender: FDA-Public Use
  Company Number: US-GLAXOSMITHKLINE-A0865049A

PATIENT
  Age: 64 Year
  Sex: Male

DRUGS (1)
  1. AVANDIA [Suspect]
     Active Substance: ROSIGLITAZONE MALEATE
     Indication: DIABETES MELLITUS
     Route: 048
     Dates: start: 200607, end: 200710

REACTIONS (3)
  - Ischaemic stroke [Unknown]
  - Transient ischaemic attack [Recovering/Resolving]
  - Carotid artery occlusion [Unknown]

NARRATIVE: CASE EVENT DATE: 200710
